FAERS Safety Report 6095117-2 (Version None)
Quarter: 2009Q1

REPORT INFORMATION
  Report Type: 
  Country: None (occurrence: None)
  Receive Date: 20090227
  Receipt Date: 20080505
  Transmission Date: 20090719
  Serious: No
  Sender: FDA-Public Use
  Company Number: A0704621A

PATIENT
  Age: 9 Year
  Sex: Male
  Weight: 29.8 kg

DRUGS (2)
  1. LAMICTAL [Suspect]
     Dosage: 87.5MG TWICE PER DAY
     Route: 048
     Dates: start: 20080105, end: 20080114
  2. KEPPRA [Concomitant]

REACTIONS (6)
  - COELIAC DISEASE [None]
  - CONDITION AGGRAVATED [None]
  - DIARRHOEA [None]
  - DISTURBANCE IN ATTENTION [None]
  - HYPERSENSITIVITY [None]
  - PSYCHOMOTOR HYPERACTIVITY [None]
